FAERS Safety Report 24032848 (Version 1)
Quarter: 2024Q3

REPORT INFORMATION
  Report Type: Spontaneous
  Country: US (occurrence: US)
  Receive Date: 20240701
  Receipt Date: 20240701
  Transmission Date: 20241016
  Serious: No
  Sender: Haleon PLC
  Company Number: US-HALEON-2183288

PATIENT

DRUGS (2)
  1. NICORETTE ORIGINAL [Suspect]
     Active Substance: NICOTINE
     Indication: Product used for unknown indication
     Dosage: EXPDATE:202604
  2. NICORETTE ORIGINAL [Suspect]
     Active Substance: NICOTINE
     Dosage: EXPDATE:202604

REACTIONS (1)
  - Product use issue [Unknown]
